FAERS Safety Report 7498346-6 (Version None)
Quarter: 2011Q2

REPORT INFORMATION
  Report Type: 
  Country: None (occurrence: None)
  Receive Date: 20110524
  Receipt Date: 20110426
  Transmission Date: 20111010
  Serious: Yes (Hospitalization, Other)
  Sender: FDA-Public Use
  Company Number: US-BAYER-201026345NA

PATIENT
  Age: 53 Year
  Sex: Female
  Weight: 113.38 kg

DRUGS (29)
  1. LACTAID [Concomitant]
  2. CALCIUM CARBONATE [Concomitant]
  3. ATACAND HCT [Concomitant]
  4. GLIPIZIDE [Concomitant]
     Dosage: 5 MG, BID
     Route: 048
  5. VITAMIN E [Concomitant]
  6. LOTREL [Concomitant]
  7. METFORMIN [Concomitant]
     Dosage: 500 MG, BID
     Route: 048
  8. CLARINEX [Concomitant]
     Dosage: 5 MG, QD
     Route: 048
  9. ASTELIN [Concomitant]
     Dosage: UNK UNK, PRN
  10. YAZ [Suspect]
     Indication: MENSTRUATION IRREGULAR
  11. LEXAPRO [Concomitant]
     Dosage: 20 MG, QD
     Route: 048
  12. ADVAIR DISKUS 100/50 [Concomitant]
     Dosage: UNK
  13. PROTONIX [Concomitant]
     Dosage: 40 MG, QD
     Route: 048
  14. ELAVIL [Concomitant]
     Dosage: 50 MG, QD
     Route: 048
  15. SINGULAIR [Concomitant]
     Dosage: 10 MG, UNK
     Route: 048
  16. HYDROXYZINE [Concomitant]
  17. ELCON [Concomitant]
  18. CENTRUM [Concomitant]
     Dosage: UNK UNK, QD
     Route: 048
  19. GAS-X [Concomitant]
  20. ASCORBIC ACID [Concomitant]
  21. HOODIA [Concomitant]
  22. YAZ [Suspect]
     Indication: PREMENSTRUAL SYNDROME
     Dosage: UNK
     Route: 048
     Dates: start: 20070901, end: 20080801
  23. MOBIC [Concomitant]
     Dosage: 7.5 MG, QD
     Route: 048
  24. PAMPRIN TAB [Concomitant]
  25. ALPRAZOLAM [Concomitant]
     Dosage: 0.25 MG, QD
     Route: 048
  26. PROPRANOLOL [Concomitant]
     Dosage: 40 MG, QD
     Route: 048
  27. XOPENEX [Concomitant]
  28. NASACORT [Concomitant]
     Dosage: UNK UNK, PRN
  29. SOY SUPPLEMENT [Concomitant]

REACTIONS (5)
  - MEMORY IMPAIRMENT [None]
  - CEREBROVASCULAR ACCIDENT [None]
  - VISUAL ACUITY REDUCED [None]
  - CEREBRAL INFARCTION [None]
  - COGNITIVE DISORDER [None]
